FAERS Safety Report 7601706-3 (Version None)
Quarter: 2011Q2

REPORT INFORMATION
  Report Type: 
  Country: None (occurrence: None)
  Receive Date: 20110630
  Receipt Date: 20110617
  Transmission Date: 20111010
  Serious: Yes (Hospitalization, Other)
  Sender: FDA-Public Use
  Company Number: US-2011-10424

PATIENT
  Age: 51 Year
  Sex: Female

DRUGS (2)
  1. SAMSCA [Suspect]
     Indication: INAPPROPRIATE ANTIDIURETIC HORMONE SECRETION
     Dosage: 15, 7.5, 1.5, 3, 4.5 MG
  2. SAMSCA [Suspect]
     Indication: HYPONATRAEMIA
     Dosage: 15, 7.5, 1.5, 3, 4.5 MG

REACTIONS (6)
  - ORTHOSTATIC HYPOTENSION [None]
  - CONFUSIONAL STATE [None]
  - RAPID CORRECTION OF HYPONATRAEMIA [None]
  - HEADACHE [None]
  - URINE OUTPUT INCREASED [None]
  - PARAESTHESIA [None]
